FAERS Safety Report 5645952-7 (Version None)
Quarter: 2008Q1

REPORT INFORMATION
  Report Type: 
  Country: None (occurrence: None)
  Receive Date: 20080229
  Receipt Date: 20080218
  Transmission Date: 20080703
  Serious: Yes (Death)
  Sender: FDA-Public Use
  Company Number: US-PFIZER INC-2008015246

PATIENT
  Sex: Male

DRUGS (3)
  1. NEURONTIN [Suspect]
  2. NORVASC [Suspect]
  3. LIPITOR [Suspect]

REACTIONS (1)
  - DEATH [None]
